FAERS Safety Report 9215572 (Version 3)
Quarter: 2013Q2

REPORT INFORMATION
  Report Type: Spontaneous
  Country: US (occurrence: US)
  Receive Date: 20130407
  Receipt Date: 20130614
  Transmission Date: 20140414
  Serious: Yes (Death, Hospitalization)
  Sender: FDA-Public Use
  Company Number: US-ALEXION PHARMACEUTICALS INC.-A201300631

PATIENT
  Age: 16 Year
  Sex: Female
  Weight: 45 kg

DRUGS (1)
  1. SOLIRIS 300MG [Suspect]
     Indication: HAEMOLYTIC URAEMIC SYNDROME
     Dosage: 900 MG, QW
     Route: 042
     Dates: start: 20121120, end: 20121212

REACTIONS (8)
  - H1N1 influenza [Fatal]
  - Systemic lupus erythematosus [Fatal]
  - Septic shock [Fatal]
  - Respiratory failure [Fatal]
  - Pleural effusion [Unknown]
  - Pericardial effusion [Unknown]
  - Renal failure chronic [Unknown]
  - Hypertension [Recovered/Resolved]
